FAERS Safety Report 19091881 (Version 22)
Quarter: 2023Q2

REPORT INFORMATION
  Report Type: Report from Study
  Country: US (occurrence: US)
  Receive Date: 20210405
  Receipt Date: 20230404
  Transmission Date: 20230722
  Serious: Yes (Hospitalization, Other)
  Sender: FDA-Public Use
  Company Number: NVSC2021US050560

PATIENT
  Age: 6 Week
  Sex: Male
  Weight: 5.62 kg

DRUGS (10)
  1. ZOLGENSMA [Suspect]
     Active Substance: ONASEMNOGENE ABEPARVOVEC-XIOI
     Indication: Spinal muscular atrophy
     Dosage: 24.8 ML, ONCE/SINGLE (1.1 X E14VG/KG)
     Route: 042
     Dates: start: 20210211
  2. FENTANYL [Concomitant]
     Active Substance: FENTANYL
     Indication: Pain
     Dosage: 3 UG (10 MCG/ML)
     Route: 065
     Dates: start: 20210510
  3. FENTANYL [Concomitant]
     Active Substance: FENTANYL
     Dosage: 4 UG (10 MCG/ML)
     Route: 065
     Dates: start: 20210510
  4. TYLENOL [Concomitant]
     Active Substance: ACETAMINOPHEN
     Indication: Pain
     Dosage: 83.2 MG
     Route: 048
     Dates: start: 20210511
  5. MARCAINE [Concomitant]
     Active Substance: BUPIVACAINE HYDROCHLORIDE
     Indication: Pain
     Dosage: 5 ML
     Route: 065
     Dates: start: 20210510
  6. DECADRON [Concomitant]
     Active Substance: DEXAMETHASONE
     Indication: Product used for unknown indication
     Dosage: 2 MG
     Route: 065
     Dates: start: 20210510
  7. DIPRIVAN [Concomitant]
     Active Substance: PROPOFOL
     Indication: Sedation
     Dosage: 10 MG
     Route: 065
     Dates: start: 20210510
  8. ANCEF [Concomitant]
     Active Substance: CEFAZOLIN SODIUM
     Indication: Surgery
     Dosage: 168.6 MG
     Route: 065
     Dates: start: 20210510
  9. OFIRMEV [Concomitant]
     Active Substance: ACETAMINOPHEN
     Indication: Pain
     Dosage: 84 MG
     Route: 042
     Dates: start: 20210510
  10. METHYLPREDNISOLONE [Concomitant]
     Active Substance: METHYLPREDNISOLONE
     Indication: Product used for unknown indication
     Dosage: 6.875 MG
     Route: 065
     Dates: start: 20211216, end: 20211221

REACTIONS (19)
  - Feeding disorder [Recovered/Resolved with Sequelae]
  - Respiratory syncytial virus infection [Recovered/Resolved]
  - Vomiting [Recovered/Resolved]
  - Troponin I increased [Recovered/Resolved]
  - Failure to thrive [Not Recovered/Not Resolved]
  - Hypoxia [Recovered/Resolved]
  - Thrombocytosis [Recovered/Resolved]
  - Thrombocytosis [Recovered/Resolved]
  - Tachycardia [Recovered/Resolved]
  - Vomiting [Recovered/Resolved]
  - Vomiting [Recovered/Resolved]
  - Feeding disorder [Not Recovered/Not Resolved]
  - Cough [Recovered/Resolved]
  - Tachycardia [Recovered/Resolved]
  - Blood phosphorus decreased [Recovered/Resolved]
  - Tachypnoea [Recovered/Resolved]
  - Tachycardia [Not Recovered/Not Resolved]
  - Hypertension [Recovered/Resolved]
  - Scoliosis [Not Recovered/Not Resolved]

NARRATIVE: CASE EVENT DATE: 20210211
